FAERS Safety Report 18346874 (Version 1)
Quarter: 2020Q4

REPORT INFORMATION
  Report Type: Spontaneous
  Country: US (occurrence: US)
  Receive Date: 20201005
  Receipt Date: 20201005
  Transmission Date: 20210114
  Serious: No
  Sender: FDA-Public Use
  Company Number: US-ALKERMES INC.-ALK-2020-004338

PATIENT
  Age: 24 Year
  Sex: Female

DRUGS (2)
  1. VIVITROL [Suspect]
     Active Substance: NALTREXONE
     Indication: DRUG DEPENDENCE
     Dosage: 380 MILLIGRAM, QMO
     Route: 030
  2. VIVITROL [Suspect]
     Active Substance: NALTREXONE
     Indication: ALCOHOLISM
     Dosage: 380 MILLIGRAM, QMO
     Route: 030
     Dates: start: 202009

REACTIONS (6)
  - Pharyngeal swelling [Not Recovered/Not Resolved]
  - Tooth infection [Not Recovered/Not Resolved]
  - Throat tightness [Not Recovered/Not Resolved]
  - Flushing [Not Recovered/Not Resolved]
  - Tremor [Recovered/Resolved]
  - Imprisonment [Not Recovered/Not Resolved]

NARRATIVE: CASE EVENT DATE: 20200926
